FAERS Safety Report 21893231 (Version 2)
Quarter: 2023Q1

REPORT INFORMATION
  Report Type: Spontaneous
  Country: ES (occurrence: ES)
  Receive Date: 20230121
  Receipt Date: 20230220
  Transmission Date: 20230417
  Serious: Yes (Other)
  Sender: FDA-Public Use
  Company Number: None

PATIENT
  Age: 30 Month
  Sex: Female

DRUGS (61)
  1. LEVETIRACETAM [Suspect]
     Active Substance: LEVETIRACETAM
     Indication: Partial seizures
     Dosage: UNK
  2. LEVETIRACETAM [Suspect]
     Active Substance: LEVETIRACETAM
     Indication: Epileptic encephalopathy
  3. LEVETIRACETAM [Suspect]
     Active Substance: LEVETIRACETAM
     Indication: Generalised tonic-clonic seizure
  4. LEVETIRACETAM [Suspect]
     Active Substance: LEVETIRACETAM
     Indication: Myoclonic epilepsy
  5. LEVETIRACETAM [Suspect]
     Active Substance: LEVETIRACETAM
     Indication: Tonic convulsion
  6. LEVETIRACETAM [Suspect]
     Active Substance: LEVETIRACETAM
     Indication: Off label use
  7. OXCARBAZEPINE [Suspect]
     Active Substance: OXCARBAZEPINE
     Indication: Generalised tonic-clonic seizure
     Dosage: 20 MG/KG, DAILY
  8. OXCARBAZEPINE [Suspect]
     Active Substance: OXCARBAZEPINE
     Indication: Tonic convulsion
  9. OXCARBAZEPINE [Suspect]
     Active Substance: OXCARBAZEPINE
     Indication: Partial seizures
  10. OXCARBAZEPINE [Suspect]
     Active Substance: OXCARBAZEPINE
     Indication: Myoclonic epilepsy
  11. OXCARBAZEPINE [Suspect]
     Active Substance: OXCARBAZEPINE
     Indication: Epileptic encephalopathy
  12. CORTICOTROPIN [Suspect]
     Active Substance: CORTICOTROPIN
     Indication: Generalised tonic-clonic seizure
     Dosage: UNK
     Route: 030
  13. CORTICOTROPIN [Suspect]
     Active Substance: CORTICOTROPIN
     Indication: Tonic convulsion
  14. CORTICOTROPIN [Suspect]
     Active Substance: CORTICOTROPIN
     Indication: Myoclonic epilepsy
  15. CORTICOTROPIN [Suspect]
     Active Substance: CORTICOTROPIN
     Indication: Partial seizures
  16. CORTICOTROPIN [Suspect]
     Active Substance: CORTICOTROPIN
     Indication: Epileptic encephalopathy
  17. CLONAZEPAM [Suspect]
     Active Substance: CLONAZEPAM
     Indication: Partial seizures
     Dosage: 0.04 MG/KG, DAY AT NIGHT
  18. CLONAZEPAM [Suspect]
     Active Substance: CLONAZEPAM
     Indication: Tonic convulsion
  19. CLONAZEPAM [Suspect]
     Active Substance: CLONAZEPAM
     Indication: Generalised tonic-clonic seizure
  20. CLONAZEPAM [Suspect]
     Active Substance: CLONAZEPAM
     Indication: Epileptic encephalopathy
  21. CLONAZEPAM [Suspect]
     Active Substance: CLONAZEPAM
     Indication: Myoclonic epilepsy
  22. VIGABATRIN [Suspect]
     Active Substance: VIGABATRIN
     Indication: Myoclonic epilepsy
     Dosage: 140 MG/KG, DAILY
  23. VIGABATRIN [Suspect]
     Active Substance: VIGABATRIN
     Indication: Generalised tonic-clonic seizure
  24. VIGABATRIN [Suspect]
     Active Substance: VIGABATRIN
     Indication: Epileptic encephalopathy
  25. VIGABATRIN [Suspect]
     Active Substance: VIGABATRIN
     Indication: Partial seizures
  26. VIGABATRIN [Suspect]
     Active Substance: VIGABATRIN
     Indication: Tonic convulsion
  27. VALPROIC ACID [Suspect]
     Active Substance: VALPROIC ACID
     Indication: Tonic convulsion
     Dosage: UNK
  28. VALPROIC ACID [Suspect]
     Active Substance: VALPROIC ACID
     Indication: Epileptic encephalopathy
  29. VALPROIC ACID [Suspect]
     Active Substance: VALPROIC ACID
     Indication: Myoclonic epilepsy
  30. VALPROIC ACID [Suspect]
     Active Substance: VALPROIC ACID
     Indication: Partial seizures
  31. VALPROIC ACID [Suspect]
     Active Substance: VALPROIC ACID
     Indication: Generalised tonic-clonic seizure
  32. PHENYTOIN SODIUM [Suspect]
     Active Substance: PHENYTOIN SODIUM
     Indication: Myoclonic epilepsy
     Dosage: UNK
  33. PHENYTOIN SODIUM [Suspect]
     Active Substance: PHENYTOIN SODIUM
     Indication: Tonic convulsion
  34. PHENYTOIN SODIUM [Suspect]
     Active Substance: PHENYTOIN SODIUM
     Indication: Generalised tonic-clonic seizure
  35. PHENYTOIN SODIUM [Suspect]
     Active Substance: PHENYTOIN SODIUM
     Indication: Partial seizures
  36. PHENYTOIN SODIUM [Suspect]
     Active Substance: PHENYTOIN SODIUM
     Indication: Epileptic encephalopathy
  37. PYRIDOXINE [Suspect]
     Active Substance: PYRIDOXINE
     Indication: Myoclonic epilepsy
     Dosage: UNK
  38. PYRIDOXINE [Suspect]
     Active Substance: PYRIDOXINE
     Indication: Tonic convulsion
  39. PYRIDOXINE [Suspect]
     Active Substance: PYRIDOXINE
     Indication: Epileptic encephalopathy
  40. PYRIDOXINE [Suspect]
     Active Substance: PYRIDOXINE
     Indication: Partial seizures
  41. PYRIDOXINE [Suspect]
     Active Substance: PYRIDOXINE
     Indication: Generalised tonic-clonic seizure
  42. BIOTIN [Suspect]
     Active Substance: BIOTIN
     Indication: Generalised tonic-clonic seizure
     Dosage: UNK
  43. BIOTIN [Suspect]
     Active Substance: BIOTIN
     Indication: Partial seizures
     Dosage: UNK
  44. BIOTIN [Suspect]
     Active Substance: BIOTIN
     Indication: Tonic convulsion
  45. BIOTIN [Suspect]
     Active Substance: BIOTIN
     Indication: Epileptic encephalopathy
  46. BIOTIN [Suspect]
     Active Substance: BIOTIN
     Indication: Myoclonic epilepsy
  47. LEUCOVORIN [Suspect]
     Active Substance: LEUCOVORIN
     Indication: Epileptic encephalopathy
     Dosage: UNK
  48. LEUCOVORIN [Suspect]
     Active Substance: LEUCOVORIN
     Indication: Generalised tonic-clonic seizure
  49. LEUCOVORIN [Suspect]
     Active Substance: LEUCOVORIN
     Indication: Myoclonic epilepsy
  50. LEUCOVORIN [Suspect]
     Active Substance: LEUCOVORIN
     Indication: Tonic convulsion
  51. LEUCOVORIN [Suspect]
     Active Substance: LEUCOVORIN
     Indication: Partial seizures
  52. TOPIRAMATE [Suspect]
     Active Substance: TOPIRAMATE
     Indication: Tonic convulsion
     Dosage: UNK
  53. TOPIRAMATE [Suspect]
     Active Substance: TOPIRAMATE
     Indication: Myoclonic epilepsy
  54. TOPIRAMATE [Suspect]
     Active Substance: TOPIRAMATE
     Indication: Epileptic encephalopathy
  55. TOPIRAMATE [Suspect]
     Active Substance: TOPIRAMATE
     Indication: Generalised tonic-clonic seizure
  56. TOPIRAMATE [Suspect]
     Active Substance: TOPIRAMATE
     Indication: Partial seizures
  57. ZONISAMIDE [Concomitant]
     Active Substance: ZONISAMIDE
     Indication: Tonic convulsion
     Dosage: 100 MG, 2X/DAY
  58. ZONISAMIDE [Concomitant]
     Active Substance: ZONISAMIDE
     Indication: Partial seizures
  59. ZONISAMIDE [Concomitant]
     Active Substance: ZONISAMIDE
     Indication: Epileptic encephalopathy
  60. ZONISAMIDE [Concomitant]
     Active Substance: ZONISAMIDE
     Indication: Myoclonic epilepsy
  61. ZONISAMIDE [Concomitant]
     Active Substance: ZONISAMIDE
     Indication: Generalised tonic-clonic seizure

REACTIONS (3)
  - Multiple-drug resistance [Unknown]
  - Off label use [Unknown]
  - Treatment failure [Unknown]
